FAERS Safety Report 15950108 (Version 1)
Quarter: 2019Q1

REPORT INFORMATION
  Report Type: Spontaneous
  Country: UA (occurrence: UA)
  Receive Date: 20190211
  Receipt Date: 20190211
  Transmission Date: 20190417
  Serious: Yes (Hospitalization, Other)
  Sender: FDA-Public Use
  Company Number: UA-BAYER-2019-019927

PATIENT
  Age: 34 Year
  Sex: Female

DRUGS (1)
  1. DZHAZ PLUS (DROSPIRENONE\ETHINYL ESTRADIOL\LEVOMEFOLATE CALCIUM) [Suspect]
     Active Substance: DROSPIRENONE\ETHINYL ESTRADIOL\LEVOMEFOLATE CALCIUM
     Indication: CONTRACEPTION
     Dosage: UNK
     Route: 048
     Dates: end: 20181008

REACTIONS (8)
  - Myalgia [None]
  - Anaemia [None]
  - Chest pain [None]
  - Pulmonary embolism [None]
  - Dyspnoea [None]
  - Tachycardia [None]
  - Pulmonary hypertension [None]
  - Deep vein thrombosis [None]

NARRATIVE: CASE EVENT DATE: 20181008
